FAERS Safety Report 6330855-5 (Version None)
Quarter: 2009Q3

REPORT INFORMATION
  Report Type: 
  Country: None (occurrence: None)
  Receive Date: 20090827
  Receipt Date: 20090821
  Transmission Date: 20100115
  Serious: Yes (Hospitalization)
  Sender: FDA-Public Use
  Company Number: FR-WYE-G04280609

PATIENT
  Sex: Female

DRUGS (3)
  1. RAPAMUNE [Suspect]
     Indication: PROPHYLAXIS AGAINST TRANSPLANT REJECTION
     Dosage: UNKNOWN
     Route: 048
     Dates: start: 20080301, end: 20090323
  2. IXPRIM [Suspect]
     Dosage: 2 TABLETS TOTAL DAILY, INSTEAD OF PRESCRIBED 4 TABLETS TOTAL DAILY
     Route: 048
     Dates: start: 20090311, end: 20090319
  3. PROGRAF [Suspect]
     Indication: PROPHYLAXIS AGAINST TRANSPLANT REJECTION
     Dosage: UNKNOWN
     Route: 048
     Dates: start: 20070114

REACTIONS (1)
  - AGRANULOCYTOSIS [None]
